FAERS Safety Report 8605450-5 (Version None)
Quarter: 2012Q3

REPORT INFORMATION
  Report Type: 
  Country: None (occurrence: None)
  Receive Date: 20120820
  Receipt Date: 20120809
  Transmission Date: 20120928
  Serious: Yes (Other)
  Sender: FDA-Public Use
  Company Number: US-BAYER-2012-032582

PATIENT
  Sex: Female
  Weight: 82 kg

DRUGS (4)
  1. YAZ [Suspect]
     Dosage: UNK
     Dates: start: 20070501, end: 20080601
  2. DOXYCYCLINE HCL [Concomitant]
     Dosage: 100 MG, BID
  3. CELEBREX [Concomitant]
     Dosage: 400 MG, UNK
     Route: 048
  4. ALEVE [Concomitant]
     Dosage: UNK
     Dates: start: 19930101

REACTIONS (4)
  - PAIN [None]
  - THROMBOPHLEBITIS SUPERFICIAL [None]
  - INJURY [None]
  - UTERINE PAIN [None]
